FAERS Safety Report 23188944 (Version 2)
Quarter: 2024Q1

REPORT INFORMATION
  Report Type: Spontaneous
  Country: US (occurrence: US)
  Receive Date: 20231115
  Receipt Date: 20240108
  Transmission Date: 20240409
  Serious: Yes (Hospitalization)
  Sender: FDA-Public Use
  Company Number: US-ELI_LILLY_AND_COMPANY-US202311004784

PATIENT
  Age: 30 Year
  Sex: Female

DRUGS (6)
  1. FORTEO [Suspect]
     Active Substance: TERIPARATIDE
     Indication: Post procedural hypoparathyroidism
     Dosage: UNK UNK, BID
     Route: 058
     Dates: start: 20230606
  2. FORTEO [Suspect]
     Active Substance: TERIPARATIDE
     Indication: Hypocalcaemia
     Dosage: UNK UNK, BID
     Route: 058
     Dates: start: 20231114
  3. CALCITRIOL [Concomitant]
     Active Substance: CALCITRIOL
     Indication: Hypocalcaemia
     Dosage: 0.5 MG, BID
     Route: 065
  4. CALCIUM CITRATE [Concomitant]
     Active Substance: CALCIUM CITRATE
     Indication: Hypocalcaemia
     Dosage: 4000 MG, DAILY
     Route: 065
  5. TUMS [Concomitant]
     Active Substance: CALCIUM CARBONATE
     Indication: Hypocalcaemia
     Dosage: UNK, PRN
  6. VITAMIN D NOS [Concomitant]
     Active Substance: VITAMIN D NOS
     Indication: Hypocalcaemia
     Dosage: UNK, DAILY
     Route: 042

REACTIONS (3)
  - Hypocalcaemia [Not Recovered/Not Resolved]
  - Off label use [Unknown]
  - Inappropriate schedule of product administration [Unknown]

NARRATIVE: CASE EVENT DATE: 20230601
